FAERS Safety Report 25221959 (Version 1)
Quarter: 2025Q2

REPORT INFORMATION
  Report Type: Spontaneous
  Country: US (occurrence: US)
  Receive Date: 20250421
  Receipt Date: 20250421
  Transmission Date: 20250716
  Serious: No
  Sender: PFIZER
  Company Number: US-PFIZER INC-202500080843

PATIENT
  Age: 53 Year
  Sex: Male

DRUGS (1)
  1. TESTOSTERONE CYPIONATE [Suspect]
     Active Substance: TESTOSTERONE CYPIONATE
     Dosage: 1 ML, WEEKLY
     Route: 030
     Dates: start: 20250322, end: 20250405

REACTIONS (4)
  - Anxiety [Recovering/Resolving]
  - Hypertension [Recovering/Resolving]
  - Insomnia [Recovering/Resolving]
  - Diplopia [Recovering/Resolving]

NARRATIVE: CASE EVENT DATE: 20250402
